FAERS Safety Report 8603115 (Version 4)
Quarter: 2014Q1

REPORT INFORMATION
  Report Type: Report from Study
  Country: US (occurrence: US)
  Receive Date: 20120607
  Receipt Date: 20140321
  Transmission Date: 20141002
  Serious: Yes (Hospitalization, Other)
  Sender: FDA-Public Use
  Company Number: US-ALEXION PHARMACEUTICALS INC.-A201201091

PATIENT
  Age: 66 Year
  Sex: Female
  Weight: 69 kg

DRUGS (31)
  1. SOLIRIS [Suspect]
     Indication: PAROXYSMAL NOCTURNAL HAEMOGLOBINURIA
     Dosage: 600 MG, QW
     Route: 042
     Dates: start: 20120411, end: 20120509
  2. SOLIRIS [Suspect]
     Dosage: 900 MG, Q2W
     Route: 042
     Dates: start: 20120509
  3. COUMADIN [Concomitant]
     Indication: ATRIAL FIBRILLATION
     Dosage: 5 MG, QD
     Route: 048
  4. ACETAMINOPHEN [Concomitant]
     Indication: PRODUCT USED FOR UNKNOWN INDICATION
     Dosage: 500 MG, TID
     Route: 048
  5. ALLOPURINOL [Concomitant]
     Indication: GOUT
     Dosage: 300 MG, QD AT BEDTIME
     Route: 048
  6. ASCORBIC ACID [Concomitant]
     Indication: PRODUCT USED FOR UNKNOWN INDICATION
     Dosage: 5 MG, BID
     Route: 048
  7. CALCIUM WITH VITAMIN D [Concomitant]
     Indication: PRODUCT USED FOR UNKNOWN INDICATION
     Dosage: 1 DF, BID
     Route: 048
  8. COREG [Concomitant]
     Indication: HYPERTENSION
     Dosage: 25 MG, BID
     Route: 048
  9. CITALOPRAM [Concomitant]
     Indication: DEPRESSION
     Dosage: 20 MG, QD AT BEDTIME
     Route: 048
  10. COLCHICINE [Concomitant]
     Indication: PRODUCT USED FOR UNKNOWN INDICATION
     Dosage: 0.6 MG, QD IN THE EVENING
     Route: 048
  11. DICYCLOMINE [Concomitant]
     Indication: PRODUCT USED FOR UNKNOWN INDICATION
     Dosage: 240 MG, TID
     Route: 048
  12. DICYCLOMINE [Concomitant]
     Dosage: 20 MG, TID
     Route: 048
  13. DILTIAZEM [Concomitant]
     Indication: HYPERTENSION
     Dosage: 240 MG, BID
     Route: 048
  14. ARICEPT [Concomitant]
     Indication: DEMENTIA
     Dosage: 10 MG, QD
     Route: 048
  15. FERROUS SULFATE [Concomitant]
     Indication: PRODUCT USED FOR UNKNOWN INDICATION
     Dosage: 325 MG, QD AT BEDTIME
     Route: 048
  16. FOLIC ACID [Concomitant]
     Indication: PRODUCT USED FOR UNKNOWN INDICATION
     Dosage: 400 MG, QD AT BEDTIME
     Route: 048
  17. LASIX [Concomitant]
     Indication: HYPERTENSION
     Dosage: 40 MG, QD
     Route: 048
  18. NORCO [Concomitant]
     Indication: PAIN
     Dosage: 5/325 1 TO 2 TABLETS Q6H
     Route: 048
  19. LEVOTHYROXINE [Concomitant]
     Indication: HYPOTHYROIDISM
     Dosage: 0.2 MG, QD
     Route: 048
  20. IMODIUM [Concomitant]
     Indication: PRODUCT USED FOR UNKNOWN INDICATION
     Dosage: 2 MG (3 TABLETS), QD
     Route: 048
  21. MULTIVITAMIN [Concomitant]
     Indication: PRODUCT USED FOR UNKNOWN INDICATION
     Dosage: 1 DF, QD EVENING
     Route: 048
  22. VITAMIN B COMPLEX [Concomitant]
     Indication: PRODUCT USED FOR UNKNOWN INDICATION
     Dosage: 1 DF, QD BEDTIME
     Route: 048
  23. REQUIP [Concomitant]
     Indication: PRODUCT USED FOR UNKNOWN INDICATION
     Dosage: 0.5 MG, BID
     Route: 048
  24. REQUIP [Concomitant]
     Dosage: 1 MG, QD AT BEDTIME
     Route: 048
  25. MEGA-RED [Concomitant]
     Indication: PRODUCT USED FOR UNKNOWN INDICATION
     Dosage: 300 MG, QD AT BEDTIME
     Route: 048
  26. TRAMADOL [Concomitant]
     Indication: PRODUCT USED FOR UNKNOWN INDICATION
     Dosage: 50 MG, TID
     Route: 048
  27. SANCTURA [Concomitant]
     Indication: PRODUCT USED FOR UNKNOWN INDICATION
     Dosage: 60 MG, QD EVERY MORNING
     Route: 048
  28. RECLAST [Concomitant]
     Indication: PRODUCT USED FOR UNKNOWN INDICATION
     Dosage: 5 MG ONCE YEARLY (AUGUST)
     Route: 042
  29. AMBIEN [Concomitant]
     Indication: INSOMNIA
     Dosage: 5 MG, QD AT BEDTIME PRN
     Route: 048
  30. CARVEDIOL [Concomitant]
     Indication: PRODUCT USED FOR UNKNOWN INDICATION
     Dosage: 25 MG, BID
     Route: 048
  31. DONEPEZIL [Concomitant]
     Indication: PRODUCT USED FOR UNKNOWN INDICATION
     Dosage: 10 MG, QD
     Route: 048

REACTIONS (20)
  - Fall [Recovered/Resolved with Sequelae]
  - Atypical pneumonia [Recovering/Resolving]
  - Lumbar vertebral fracture [Not Recovered/Not Resolved]
  - Atrial fibrillation [Not Recovered/Not Resolved]
  - International normalised ratio increased [Recovering/Resolving]
  - Mitral valve stenosis [Not Recovered/Not Resolved]
  - Normal pressure hydrocephalus [Not Recovered/Not Resolved]
  - Restless legs syndrome [Not Recovered/Not Resolved]
  - Gout [Not Recovered/Not Resolved]
  - Dementia Alzheimer^s type [Not Recovered/Not Resolved]
  - Renal failure chronic [Not Recovered/Not Resolved]
  - Escherichia urinary tract infection [Recovering/Resolving]
  - Thrombocytopenia [Not Recovered/Not Resolved]
  - Depression [Not Recovered/Not Resolved]
  - Transfusion [Unknown]
  - Contusion [Unknown]
  - Hypothyroidism [Unknown]
  - Balance disorder [Unknown]
  - Hypertension [Unknown]
  - Asthenia [Unknown]
